FAERS Safety Report 8559181-0 (Version None)
Quarter: 2012Q3

REPORT INFORMATION
  Report Type: 
  Country: None (occurrence: None)
  Receive Date: 20120720
  Receipt Date: 20120705
  Transmission Date: 20120928
  Serious: Yes (Hospitalization)
  Sender: FDA-Public Use
  Company Number: JP-2012-15777

PATIENT
  Age: 93 Year
  Sex: Female

DRUGS (3)
  1. LASIX [Concomitant]
  2. SAMSCA [Suspect]
     Indication: LEFT VENTRICULAR FAILURE
     Dosage: 7.5 MG MILLIGRAM(S), DAILY DOSE, PARENTERAL 15 MG MILLIGRAM(S), DAILY DOSE, PARENTERAL
     Route: 051
     Dates: start: 20120629, end: 20120630
  3. SAMSCA [Suspect]
     Indication: LEFT VENTRICULAR FAILURE
     Dosage: 7.5 MG MILLIGRAM(S), DAILY DOSE, PARENTERAL 15 MG MILLIGRAM(S), DAILY DOSE, PARENTERAL
     Route: 051
     Dates: start: 20120701, end: 20120701

REACTIONS (1)
  - HYPERNATRAEMIA [None]
